FAERS Safety Report 12947591 (Version 5)
Quarter: 2018Q2

REPORT INFORMATION
  Report Type: Report from Study
  Country: FR (occurrence: FR)
  Receive Date: 20161116
  Receipt Date: 20180620
  Transmission Date: 20180711
  Serious: Yes (Hospitalization, Other)
  Sender: FDA-Public Use
  Company Number: FR-INCYTE CORPORATION-2014IN002187

PATIENT

DRUGS (3)
  1. JAKAVI [Suspect]
     Active Substance: RUXOLITINIB
     Indication: MYELOFIBROSIS
     Dosage: 20 MG, BID
     Route: 048
     Dates: start: 201307, end: 20140707
  2. JAKAVI [Suspect]
     Active Substance: RUXOLITINIB
     Dosage: UNK
     Route: 048
     Dates: start: 20140713
  3. KARDEGIC [Suspect]
     Active Substance: ASPIRIN DL-LYSINE
     Indication: MYELOFIBROSIS
     Dosage: 15 MG, UNK
     Route: 048
     Dates: end: 20140707

REACTIONS (9)
  - Pneumoperitoneum [Recovered/Resolved]
  - Rectal haemorrhage [Recovered/Resolved with Sequelae]
  - Procedural intestinal perforation [Recovered/Resolved]
  - Large intestine polyp [Recovered/Resolved]
  - Blast cell crisis [Not Recovered/Not Resolved]
  - Anaemia [Recovered/Resolved]
  - Blood glucose increased [Unknown]
  - Haemorrhagic anaemia [Unknown]
  - Diverticulum intestinal haemorrhagic [Unknown]

NARRATIVE: CASE EVENT DATE: 201406
